FAERS Safety Report 6185828-2 (Version None)
Quarter: 2009Q2

REPORT INFORMATION
  Report Type: 
  Country: None (occurrence: None)
  Receive Date: 20090511
  Receipt Date: 20090501
  Transmission Date: 20091009
  Serious: Yes (Life-Threatening, Hospitalization)
  Sender: FDA-Public Use
  Company Number: A0771681A

PATIENT
  Age: 65 Year
  Sex: Male
  Weight: 133.2 kg

DRUGS (3)
  1. AVANDIA [Suspect]
     Dosage: 8MG PER DAY
     Route: 048
     Dates: start: 20060228, end: 20070601
  2. AVANDAMET [Concomitant]
     Route: 048
     Dates: start: 20041101, end: 20050501
  3. METOPROLOL [Concomitant]

REACTIONS (4)
  - ARTERIOSCLEROSIS [None]
  - CARDIAC FAILURE CONGESTIVE [None]
  - CORONARY ARTERY OCCLUSION [None]
  - MYOCARDIAL INFARCTION [None]
